FAERS Safety Report 11199484 (Version 1)
Quarter: 2015Q2

REPORT INFORMATION
  Report Type: Spontaneous
  Country: US (occurrence: US)
  Receive Date: 20150618
  Receipt Date: 20150618
  Transmission Date: 20150821
  Serious: No
  Sender: FDA-Public Use
  Company Number: US-BIOGENIDEC-2015BI083647

PATIENT
  Age: 54 Year
  Sex: Female

DRUGS (1)
  1. TECFIDERA [Suspect]
     Active Substance: DIMETHYL FUMARATE
     Indication: RELAPSING-REMITTING MULTIPLE SCLEROSIS
     Route: 048
     Dates: start: 20150205

REACTIONS (3)
  - Fatigue [Unknown]
  - Hemiparesis [Recovered/Resolved with Sequelae]
  - Mobility decreased [Recovered/Resolved with Sequelae]

NARRATIVE: CASE EVENT DATE: 20150511
